FAERS Safety Report 7796729-8 (Version None)
Quarter: 2011Q4

REPORT INFORMATION
  Report Type: 
  Country: None (occurrence: None)
  Receive Date: 20111005
  Receipt Date: 20110926
  Transmission Date: 20120403
  Serious: Yes (Hospitalization, Disabling)
  Sender: FDA-Public Use
  Company Number: US-JNJFOC-20110900793

PATIENT
  Age: 72 Year
  Sex: Female

DRUGS (2)
  1. REMICADE [Suspect]
     Indication: CROHN'S DISEASE
     Route: 042
     Dates: start: 20060101
  2. REMICADE [Suspect]
     Route: 042
     Dates: start: 20110818, end: 20110818

REACTIONS (6)
  - POLYCYTHAEMIA VERA [None]
  - CEREBROVASCULAR ACCIDENT [None]
  - HEADACHE [None]
  - MUSCULAR WEAKNESS [None]
  - ENCEPHALITIS [None]
  - HYPOAESTHESIA [None]
